FAERS Safety Report 5888956-1 (Version None)
Quarter: 2008Q3

REPORT INFORMATION
  Report Type: 
  Country: None (occurrence: None)
  Receive Date: 20080919
  Receipt Date: 20080915
  Transmission Date: 20090109
  Serious: Yes (Death, Hospitalization)
  Sender: FDA-Public Use
  Company Number: US-TEVA-175329USA

PATIENT
  Age: 11 Year
  Sex: Male

DRUGS (1)
  1. PROPOFOL [Suspect]
     Indication: SEDATION
     Dosage: 125 MCG/KG/MIN TO 400 MCG/KG/MIN
     Route: 041
     Dates: start: 20080424

REACTIONS (11)
  - ANOXIC ENCEPHALOPATHY [None]
  - ARRHYTHMIA [None]
  - BRADYCARDIA [None]
  - CARDIAC ARREST [None]
  - CARDIAC FAILURE [None]
  - CHROMATURIA [None]
  - DISSEMINATED INTRAVASCULAR COAGULATION [None]
  - HEART RATE DECREASED [None]
  - HYPERKALAEMIA [None]
  - MULTI-ORGAN FAILURE [None]
  - TACHYCARDIA [None]
